FAERS Safety Report 5008470-5 (Version None)
Quarter: 2006Q2

REPORT INFORMATION
  Report Type: 
  Country: None (occurrence: None)
  Receive Date: 20060518
  Receipt Date: 20060509
  Transmission Date: 20061013
  Serious: Yes (Death)
  Sender: FDA-Public Use
  Company Number: 2006-05-0526

PATIENT
  Age: 40 Year
  Sex: Male

DRUGS (2)
  1. PEG-INTRON [Suspect]
     Indication: HEPATITIS C
     Dosage: 200 UG SUBCUTANEOUS
     Route: 058
     Dates: start: 20060203
  2. REBETOL [Suspect]
     Indication: HEPATITIS C
     Dosage: 1200 MG ORAL
     Route: 048
     Dates: start: 20060203, end: 20060306

REACTIONS (1)
  - ANAEMIA [None]
